FAERS Safety Report 13661835 (Version 2)
Quarter: 2017Q4

REPORT INFORMATION
  Report Type: Spontaneous
  Country: US (occurrence: US)
  Receive Date: 20170616
  Receipt Date: 20171010
  Transmission Date: 20180320
  Serious: Yes (Other)
  Sender: FDA-Public Use
  Company Number: US-BAYER-2017-104881

PATIENT
  Age: 84 Year
  Sex: Female
  Weight: 56.96 kg

DRUGS (6)
  1. BAYER ASPIRIN [Concomitant]
     Active Substance: ASPIRIN
     Indication: ISCHAEMIC HEART DISEASE PROPHYLAXIS
  2. SERTRALINE [Concomitant]
     Active Substance: SERTRALINE HYDROCHLORIDE
     Dosage: 25 MG, UNK
  3. MIRALAX [Suspect]
     Active Substance: POLYETHYLENE GLYCOL 3350
     Indication: GASTROINTESTINAL DISORDER
     Dosage: 1 DF, QOD
     Route: 048
     Dates: start: 2010
  4. LISINOPRIL. [Concomitant]
     Active Substance: LISINOPRIL
  5. PANTOPRAZOLE [Concomitant]
     Active Substance: PANTOPRAZOLE
     Dosage: 40 MG, UNK
  6. MIRALAX [Suspect]
     Active Substance: POLYETHYLENE GLYCOL 3350
     Indication: GASTROINTESTINAL DISORDER
     Dosage: 1 DF, QOD
     Route: 048
     Dates: start: 2010

REACTIONS (17)
  - Diarrhoea [Unknown]
  - Inappropriate prescribing [Unknown]
  - Blindness unilateral [Not Recovered/Not Resolved]
  - Decreased appetite [Recovered/Resolved]
  - Hunger [Recovered/Resolved]
  - Diarrhoea [Recovered/Resolved]
  - Fatigue [Recovered/Resolved]
  - Intentional product use issue [Unknown]
  - Product use in unapproved indication [Unknown]
  - Product use issue [Unknown]
  - Off label use [Unknown]
  - Inappropriate schedule of drug administration [Unknown]
  - Product use issue [Recovered/Resolved]
  - Abnormal behaviour [Unknown]
  - Product use issue [Unknown]
  - Incorrect drug administration duration [Unknown]
  - Drug administration error [None]

NARRATIVE: CASE EVENT DATE: 2010
